FAERS Safety Report 24120631 (Version 1)
Quarter: 2024Q3

REPORT INFORMATION
  Report Type: Spontaneous
  Country: US (occurrence: None)
  Receive Date: 20240720
  Receipt Date: 20240720
  Transmission Date: 20241017
  Serious: No
  Sender: Public
  Company Number: None

PATIENT
  Age: 51 Year
  Sex: Male

DRUGS (1)
  1. COMETRIQ [Suspect]
     Active Substance: CABOZANTINIB S-MALATE
     Indication: Thyroid cancer
     Dosage: FREQUENCY : DAILY;?
     Route: 048
     Dates: start: 20240619

REACTIONS (5)
  - Blood pressure increased [None]
  - Paraesthesia [None]
  - Paraesthesia [None]
  - Paraesthesia [None]
  - Pain in extremity [None]

NARRATIVE: CASE EVENT DATE: 20240709
